FAERS Safety Report 22265963 (Version 1)
Quarter: 2023Q2

REPORT INFORMATION
  Report Type: Spontaneous
  Country: GB (occurrence: GB)
  Receive Date: 20230428
  Receipt Date: 20230428
  Transmission Date: 20230722
  Serious: Yes (Death)
  Sender: FDA-Public Use
  Company Number: None

PATIENT
  Age: 50 Year
  Sex: Male
  Weight: 117 kg

DRUGS (12)
  1. PREDNISOLONE [Suspect]
     Active Substance: PREDNISOLONE
     Indication: Product used for unknown indication
     Dosage: OCCASIONAL COURSES
     Route: 048
  2. ASPIRIN [Suspect]
     Active Substance: ASPIRIN
     Indication: Prophylaxis
     Route: 048
     Dates: start: 19900704
  3. CAPTOPRIL [Suspect]
     Active Substance: CAPTOPRIL
     Indication: Product used for unknown indication
     Dosage: 25 MILLIGRAM DAILY;
     Route: 065
     Dates: start: 19900704, end: 19910209
  4. VENTOLIN [Suspect]
     Active Substance: ALBUTEROL SULFATE
     Indication: Asthma
     Dosage: 2 DOSAGE FORMS DAILY; 2 AT NIGHT
     Route: 048
     Dates: start: 199005, end: 19910115
  5. VENTOLIN [Suspect]
     Active Substance: ALBUTEROL SULFATE
     Indication: Asthma
     Dosage: 8 DOSAGE FORMS DAILY;
     Route: 065
     Dates: start: 19860514, end: 19910209
  6. AMILORIDE HYDROCHLORIDE\FUROSEMIDE [Suspect]
     Active Substance: AMILORIDE HYDROCHLORIDE\FUROSEMIDE
     Indication: Product used for unknown indication
     Dosage: 1 DOSAGE FORMS DAILY;
     Route: 048
     Dates: start: 19900618, end: 19910209
  7. NITROLINGUAL [Suspect]
     Active Substance: NITROGLYCERIN
     Indication: Asthma
     Dosage: 15 DOSAGE FORMS DAILY;
     Route: 065
     Dates: start: 19850619, end: 19910209
  8. ADALAT [Suspect]
     Active Substance: NIFEDIPINE
     Indication: Hypertension
     Route: 048
     Dates: start: 19861203, end: 19910209
  9. ISOSORBIDE MONONITRATE [Suspect]
     Active Substance: ISOSORBIDE MONONITRATE
     Indication: Hypertension
     Dosage: 1 DOSAGE FORMS DAILY;
     Route: 065
     Dates: start: 19900704, end: 19910209
  10. SEREVENT DISKUS [Suspect]
     Active Substance: SALMETEROL XINAFOATE
     Indication: Product used for unknown indication
     Dosage: 2 DOSAGE FORMS DAILY;
     Route: 065
     Dates: start: 19910116, end: 19910209
  11. BECLOMETHASONE DIPROPIONATE [Suspect]
     Active Substance: BECLOMETHASONE DIPROPIONATE
     Indication: Asthma
     Dosage: 8 DOSAGE FORMS DAILY;
     Route: 065
     Dates: start: 19880115, end: 19910209
  12. DIGOXIN [Suspect]
     Active Substance: DIGOXIN
     Indication: Product used for unknown indication
     Route: 048
     Dates: start: 19900618, end: 19910209

REACTIONS (1)
  - Death [Fatal]

NARRATIVE: CASE EVENT DATE: 19910209
